FAERS Safety Report 5122866-2 (Version None)
Quarter: 2006Q4

REPORT INFORMATION
  Report Type: 
  Country: None (occurrence: None)
  Receive Date: 20061005
  Receipt Date: 20060924
  Transmission Date: 20070319
  Serious: Yes (Other)
  Sender: FDA-Public Use
  Company Number: 2006114797

PATIENT
  Age: 75 Year
  Sex: Male
  Weight: 74.3899 kg

DRUGS (8)
  1. XALATAN [Suspect]
     Dosage: OPHTHALMIC
     Route: 047
     Dates: start: 20040101
  2. LABETALOL (LABETOLOL) [Concomitant]
  3. OMEPRAZOLE [Concomitant]
  4. LISINOPRIL W/HYDROCHLOROTHIAZIDE (HYDROCHLOROTHIAZIDE, LISINOPRIL) [Concomitant]
  5. TERAZOSIN HCL [Concomitant]
  6. FLUTICASONE PROPIONATE [Concomitant]
  7. BRIMONIDINE HYDROCHLORIDE [Suspect]
  8. MULTIPLE VITAMINS (ASCORBIC ACID, ERGOCALCIFEROL, FOLIC ACID, RETINOL, [Suspect]
     Dates: start: 20060901, end: 20060901

REACTIONS (7)
  - EYE DISORDER [None]
  - EYE IRRITATION [None]
  - EYE PAIN [None]
  - PALPITATIONS [None]
  - PARATHYROID GLAND OPERATION [None]
  - POOR QUALITY DRUG ADMINISTERED [None]
  - VISUAL FIELD TESTS ABNORMAL [None]
